FAERS Safety Report 8526004-5 (Version None)
Quarter: 2012Q3

REPORT INFORMATION
  Report Type: 
  Country: None (occurrence: None)
  Receive Date: 20120720
  Receipt Date: 20120713
  Transmission Date: 20120928
  Serious: Yes (Hospitalization, Other)
  Sender: FDA-Public Use
  Company Number: NL-ABBOTT-12P-114-0956297-00

PATIENT
  Sex: Male
  Weight: 106 kg

DRUGS (8)
  1. HUMIRA [Suspect]
     Route: 058
     Dates: start: 20100311, end: 20110502
  2. HUMIRA [Suspect]
     Route: 058
  3. STATINE [Concomitant]
     Indication: PRODUCT USED FOR UNKNOWN INDICATION
     Route: 048
  4. ANTI-HYPERTENSION MEDICATION (NOS) [Concomitant]
     Indication: HYPERTENSION
  5. HUMIRA [Suspect]
     Route: 058
     Dates: start: 20110605, end: 20110609
  6. METFORMIN HCL [Concomitant]
     Indication: DIABETES MELLITUS
     Route: 048
  7. HUMIRA [Suspect]
     Indication: PSORIASIS
     Dosage: 2X40MG
     Route: 058
     Dates: start: 20100304, end: 20100311
  8. HUMIRA [Suspect]
     Route: 058
     Dates: start: 20110925, end: 20120205

REACTIONS (5)
  - ERYSIPELAS [None]
  - OSTEOMYELITIS [None]
  - OSTEITIS [None]
  - DIABETIC FOOT [None]
  - NECROSIS [None]
